FAERS Safety Report 10013672 (Version 2)
Quarter: 2014Q3

REPORT INFORMATION
  Report Type: Spontaneous
  Country: US (occurrence: US)
  Receive Date: 20140315
  Receipt Date: 20140904
  Transmission Date: 20150326
  Serious: Yes (Other)
  Sender: FDA-Public Use
  Company Number: US-TEVA-468820USA

PATIENT
  Age: 19 Year
  Sex: Female
  Weight: 83.54 kg

DRUGS (1)
  1. PLAN B ONE-STEP [Suspect]
     Active Substance: LEVONORGESTREL
     Indication: POST COITAL CONTRACEPTION
     Dosage: 1.5 MILLIGRAM DAILY;
     Route: 048

REACTIONS (6)
  - Exposure during pregnancy [Unknown]
  - Subchorionic haemorrhage [Recovered/Resolved]
  - Pregnancy [Unknown]
  - Malaise [Unknown]
  - Cystitis [Recovered/Resolved]
  - Pelvic pain [Recovered/Resolved]

NARRATIVE: CASE EVENT DATE: 20140109
